FAERS Safety Report 17205108 (Version 2)
Quarter: 2020Q1

REPORT INFORMATION
  Report Type: Report from Study
  Country: HR (occurrence: HR)
  Receive Date: 20191227
  Receipt Date: 20200113
  Transmission Date: 20200409
  Serious: Yes (Hospitalization)
  Sender: FDA-Public Use
  Company Number: HR-ALEXION-A201815392

PATIENT
  Age: 49 Year
  Sex: Female
  Weight: 116 kg

DRUGS (25)
  1. IMURAN [Concomitant]
     Active Substance: AZATHIOPRINE
     Dosage: 50 MG, TID
     Route: 048
  2. CALCIUM [Concomitant]
     Active Substance: CALCIUM
     Indication: PROPHYLAXIS
     Dosage: 1 G, QD
     Route: 048
     Dates: start: 20170327
  3. CONTROLOC [Concomitant]
     Active Substance: PANTOPRAZOLE SODIUM
     Indication: PROPHYLAXIS
     Dosage: 40 MG, QD
     Route: 048
     Dates: start: 20170304
  4. MEDROL [Concomitant]
     Active Substance: METHYLPREDNISOLONE
     Indication: PROPHYLAXIS
     Dosage: 8 MG, QD
     Route: 048
     Dates: start: 20180315
  5. ECULIZUMAB [Suspect]
     Active Substance: ECULIZUMAB
     Indication: NEUROMYELITIS OPTICA SPECTRUM DISORDER
     Dosage: 240 ML, Q2W
     Route: 042
     Dates: start: 20171206, end: 20171206
  6. LORAZEPAM. [Concomitant]
     Active Substance: LORAZEPAM
     Indication: ANXIETY
     Dosage: 1 MG, QD
     Route: 048
     Dates: start: 20141013
  7. ANDOL [Concomitant]
     Active Substance: ASPIRIN
     Indication: THROMBOCYTOSIS
  8. EUTHYROX [Concomitant]
     Active Substance: LEVOTHYROXINE SODIUM
     Indication: AUTOIMMUNE THYROIDITIS
     Dosage: 75 ?G, QD
     Route: 048
     Dates: start: 20150915
  9. PRADAXA [Concomitant]
     Active Substance: DABIGATRAN ETEXILATE MESYLATE
     Indication: PROPHYLAXIS
     Dosage: 150 MG, BID
     Route: 048
     Dates: start: 20171221
  10. MEROPENEM. [Concomitant]
     Active Substance: MEROPENEM
     Indication: PYELONEPHRITIS ACUTE
     Dosage: 2 G, BID
     Route: 042
     Dates: start: 20181017, end: 20181018
  11. ECULIZUMAB [Suspect]
     Active Substance: ECULIZUMAB
     Dosage: 240 ML, UNK
     Route: 042
     Dates: start: 20181107
  12. DIAZEPAM. [Concomitant]
     Active Substance: DIAZEPAM
     Indication: MUSCLE SPASTICITY
     Dosage: 5 MG, QD
     Route: 048
     Dates: start: 20150328
  13. CONTROLOC [Concomitant]
     Active Substance: PANTOPRAZOLE SODIUM
     Dosage: 40 MG, QD
     Route: 048
     Dates: start: 20171010
  14. LYRICA [Concomitant]
     Active Substance: PREGABALIN
     Indication: PAIN
     Dosage: 150 MG, QD
     Route: 048
     Dates: start: 20141124
  15. LYRICA [Concomitant]
     Active Substance: PREGABALIN
     Dosage: 225 MG, QD
     Route: 048
     Dates: start: 20141124
  16. ANDOL [Concomitant]
     Active Substance: ASPIRIN
     Indication: PROPHYLAXIS
     Dosage: 100 MG, QD
     Route: 048
     Dates: start: 20150324
  17. NITROFURANTOIN. [Concomitant]
     Active Substance: NITROFURANTOIN
     Indication: PROPHYLAXIS URINARY TRACT INFECTION
     Dosage: 100 MG, QD
     Route: 048
     Dates: start: 20181121
  18. CEFTRIAXONE. [Concomitant]
     Active Substance: CEFTRIAXONE
     Indication: PYELONEPHRITIS ACUTE
     Dosage: 2 G, QD
     Route: 042
     Dates: start: 20181019, end: 20181024
  19. HALOPERIDOL. [Concomitant]
     Active Substance: HALOPERIDOL
     Indication: ANXIETY
     Dosage: 5 MG, QD
     Route: 048
     Dates: start: 201706
  20. VITAMIN D3 [Concomitant]
     Active Substance: CHOLECALCIFEROL
     Indication: VITAMIN SUPPLEMENTATION
     Dosage: 3000 IU, QD
     Route: 048
     Dates: start: 20140715
  21. IMURAN [Concomitant]
     Active Substance: AZATHIOPRINE
     Indication: PROPHYLAXIS
     Dosage: 150 MG, QD
     Route: 048
     Dates: start: 20150112
  22. DULOXETINE. [Concomitant]
     Active Substance: DULOXETINE
     Indication: PAIN
     Dosage: 60 MG, QD
     Route: 048
     Dates: start: 20151201
  23. DARIFENACIN. [Concomitant]
     Active Substance: DARIFENACIN
     Indication: URINARY INCONTINENCE
     Dosage: 7.5 MG, QD
     Route: 048
     Dates: start: 20170616
  24. TIZANIDINE. [Concomitant]
     Active Substance: TIZANIDINE
     Indication: MUSCLE SPASTICITY
     Dosage: 4 MG, TID
     Route: 048
     Dates: start: 20180320
  25. VANCOMYCIN [Concomitant]
     Active Substance: VANCOMYCIN
     Indication: PYELONEPHRITIS ACUTE
     Dosage: 1 G, BID
     Route: 042
     Dates: start: 20181017, end: 20181017

REACTIONS (1)
  - Escherichia pyelonephritis [Recovered/Resolved]

NARRATIVE: CASE EVENT DATE: 20181107
